FAERS Safety Report 9379949 (Version 2)
Quarter: 2013Q3

REPORT INFORMATION
  Report Type: Spontaneous
  Country: JP (occurrence: JP)
  Receive Date: 20130702
  Receipt Date: 20130712
  Transmission Date: 20140515
  Serious: Yes (Death, Life-Threatening, Hospitalization, Other)
  Sender: FDA-Public Use
  Company Number: PHHY2013JP067878

PATIENT
  Age: 55 Year
  Sex: Female

DRUGS (6)
  1. CICLOSPORIN [Suspect]
     Indication: APLASTIC ANAEMIA
     Dates: start: 201205, end: 201206
  2. CICLOSPORIN [Suspect]
     Indication: HEPATITIS
  3. PREDNISOLONE [Suspect]
     Indication: APLASTIC ANAEMIA
  4. PREDNISOLONE [Suspect]
     Indication: HEPATITIS
  5. ANTITHYMOCYTE IMMUNOGLOBULIN [Suspect]
     Indication: APLASTIC ANAEMIA
  6. ANTITHYMOCYTE IMMUNOGLOBULIN [Suspect]
     Indication: HEPATITIS

REACTIONS (7)
  - Respiratory failure [Fatal]
  - Cerebral infarction [Fatal]
  - Central nervous system lesion [Fatal]
  - Disorientation [Fatal]
  - Hepatic function abnormal [Not Recovered/Not Resolved]
  - Central nervous system fungal infection [Unknown]
  - Central nervous system viral infection [Unknown]
